FAERS Safety Report 4900420-2 (Version None)
Quarter: 2006Q1

REPORT INFORMATION
  Report Type: 
  Country: None (occurrence: None)
  Receive Date: 20060203
  Receipt Date: 20060117
  Transmission Date: 20060701
  Serious: Yes (Hospitalization)
  Sender: FDA-Public Use
  Company Number: US-SANOFI-SYNTHELABO-A03200600343

PATIENT
  Sex: Male

DRUGS (1)
  1. AMBIEN [Suspect]
     Indication: INSOMNIA
     Dosage: TOOK 5 MG AND ANOTHER DOSE OF 5 MG AN HOUR LATER
     Route: 064
     Dates: start: 20051205

REACTIONS (7)
  - CYANOSIS [None]
  - DRUG EXPOSURE DURING PREGNANCY [None]
  - DRUG EXPOSURE VIA BREAST MILK [None]
  - HAEMATOCRIT INCREASED [None]
  - NEONATAL DISORDER [None]
  - OCULAR ICTERUS [None]
  - OXYGEN SATURATION DECREASED [None]
